FAERS Safety Report 20602236 (Version 3)
Quarter: 2022Q1

REPORT INFORMATION
  Report Type: Spontaneous
  Country: AT (occurrence: AT)
  Receive Date: 20220316
  Receipt Date: 20220325
  Transmission Date: 20220423
  Serious: Yes (Hospitalization, Other)
  Sender: FDA-Public Use
  Company Number: AT-TEVA-2022-AT-2017259

PATIENT
  Age: 55 Year
  Sex: Female

DRUGS (9)
  1. COPAXONE [Suspect]
     Active Substance: GLATIRAMER ACETATE
     Indication: Relapsing-remitting multiple sclerosis
     Dates: start: 201409, end: 20220310
  2. NEXIUM [Concomitant]
     Active Substance: ESOMEPRAZOLE MAGNESIUM
     Dosage: 40
  3. LEVOTHYROXINE SODIUM [Concomitant]
     Active Substance: LEVOTHYROXINE SODIUM
     Dosage: 75
  4. TRAZODONE HYDROCHLORIDE [Concomitant]
     Active Substance: TRAZODONE HYDROCHLORIDE
     Dosage: 175
  5. PANCRELIPASE [Concomitant]
     Active Substance: PANCRELIPASE
  6. LYRICA [Concomitant]
     Active Substance: PREGABALIN
  7. DULOXETINE [Concomitant]
     Active Substance: DULOXETINE
  8. METOPROLOL [Concomitant]
     Active Substance: METOPROLOL
  9. DRONABINOL [Concomitant]
     Active Substance: DRONABINOL

REACTIONS (12)
  - Blood pressure decreased [Recovering/Resolving]
  - Tachycardia [Recovering/Resolving]
  - Flushing [Recovering/Resolving]
  - Throat tightness [Recovering/Resolving]
  - Vomiting [Recovering/Resolving]
  - Skin discolouration [Recovering/Resolving]
  - Erythema [Recovering/Resolving]
  - Hypersensitivity [Recovering/Resolving]
  - Dyspnoea [Recovering/Resolving]
  - Flushing [Recovered/Resolved]
  - Erythema [Recovered/Resolved]
  - Dyspnoea [Recovered/Resolved]

NARRATIVE: CASE EVENT DATE: 20190901
